FAERS Safety Report 8803944 (Version 1)
Quarter: 2012Q4

REPORT INFORMATION
  Report Type: 
  Country: US (occurrence: US)
  Receive Date: 20120924
  Receipt Date: 20120924
  Transmission Date: 20130627
  Serious: No
  Sender: FDA-Public Use
  Company Number: US-PFIZER INC-2012231815

PATIENT
  Age: 13 Year
  Sex: Female
  Weight: 42.63 kg

DRUGS (2)
  1. DEPO-PROVERA [Suspect]
     Indication: ROUTINE HEALTH MAINTENANCE
     Dosage: UNK
     Dates: start: 20120711
  2. DEPO-PROVERA [Suspect]
     Indication: MENSTRUAL CYCLE MANAGEMENT

REACTIONS (1)
  - Off label use [Unknown]
